FAERS Safety Report 9090959 (Version 2)
Quarter: 2013Q2

REPORT INFORMATION
  Report Type: Report from Study
  Country: JP (occurrence: JP)
  Receive Date: 20130201
  Receipt Date: 20130404
  Transmission Date: 20140414
  Serious: Yes (Hospitalization)
  Sender: FDA-Public Use
  Company Number: JP-ABBOTT-13P-087-1042883-00

PATIENT
  Age: 29 Year
  Sex: Male
  Weight: 61.8 kg

DRUGS (7)
  1. HUMIRA [Suspect]
     Indication: CROHN^S DISEASE
     Route: 058
     Dates: start: 20120425, end: 20120425
  2. HUMIRA [Suspect]
     Dates: start: 20120509, end: 20120509
  3. HUMIRA [Suspect]
     Dates: start: 20120523
  4. MESALAZINE [Concomitant]
     Indication: CROHN^S DISEASE
     Route: 048
  5. OMEPRAZOLE [Concomitant]
     Indication: ULCER
     Route: 048
  6. OMEPRAZOLE [Concomitant]
     Indication: PROPHYLAXIS
  7. LACTOMIN [Concomitant]
     Indication: CROHN^S DISEASE

REACTIONS (2)
  - Anastomotic stenosis [Recovered/Resolved]
  - Ileus [Unknown]
